FAERS Safety Report 15230030 (Version 2)
Quarter: 2019Q3

REPORT INFORMATION
  Report Type: Spontaneous
  Country: US (occurrence: US)
  Receive Date: 20180802
  Receipt Date: 20190806
  Transmission Date: 20191004
  Serious: Yes (Other)
  Sender: FDA-Public Use
  Company Number: US-ACCORD-062736

PATIENT
  Age: 53 Year
  Sex: Female
  Weight: 92.53 kg

DRUGS (29)
  1. TRASTUZUMAB. [Suspect]
     Active Substance: TRASTUZUMAB
     Indication: BREAST CANCER
     Dates: start: 20151020, end: 20160113
  2. PROTONIX [Concomitant]
     Active Substance: PANTOPRAZOLE SODIUM
     Dosage: TAKE BY MOUTH ONCE DAILY
     Route: 048
  3. FIBER [Concomitant]
     Active Substance: PSYLLIUM HUSK
     Dosage: STRENGTH: 2 GM?TAKE BY MOUTH
     Route: 048
  4. EMLA [Concomitant]
     Active Substance: LIDOCAINE\PRILOCAINE
     Dosage: APPLY ONE SMALL DOLLOP OVER MEDIPORT ONE HOUR PRIOR TO PROCEDURE
  5. OMEGA-3 FATTY ACIDS [Concomitant]
     Active Substance: OMEGA-3 FATTY ACIDS
     Dosage: STRENGTH: 500 MG?TAKE ONE DAILY
     Route: 048
  6. ERGOCALCIFEROL. [Concomitant]
     Active Substance: ERGOCALCIFEROL
  7. LINESS [Concomitant]
     Dates: start: 1995
  8. ASCORBIC ACID. [Concomitant]
     Active Substance: ASCORBIC ACID
     Dosage: STRENGTH: 125 MG?TAKE BY MOUTH ONCE DAILY
     Route: 048
  9. IRON [Concomitant]
     Active Substance: IRON
     Dosage: STRENGTH: 325 MG?TAKE 1 TABLET THREE TIMES DAILY WITH MEALS
     Route: 048
  10. MYCOSTATIN [Concomitant]
     Active Substance: NYSTATIN
     Dosage: STRENGTH: 100000 UNIT/ML?TAKE 5 ML BY MOUTH FOUR TIMES DAILY
     Route: 048
  11. ZITHROMAX [Concomitant]
     Active Substance: AZITHROMYCIN DIHYDRATE
     Dosage: STRENGTH: 250 MG?TAKE TWO TABLETS BY MOUTH THE FIRST DAY AND THEN ONE TABLET DAILY FOR 4 DAYS
     Route: 048
  12. DOCETAXEL ACCORD [Suspect]
     Active Substance: DOCETAXEL
     Indication: BREAST CANCER
     Dosage: 75 MG EVERY 3 WEEKS
     Route: 042
     Dates: start: 20151020, end: 20160113
  13. OCUVITE [Concomitant]
     Active Substance: VITAMINS
     Dosage: TAKE 1 TABLET BY MOUTH ONCE DAILY
     Route: 048
  14. RETINOL [Concomitant]
     Active Substance: RETINOL
  15. IBUPROFEN. [Concomitant]
     Active Substance: IBUPROFEN
     Dates: start: 1995
  16. PARAPLATIN [Suspect]
     Active Substance: CARBOPLATIN
     Indication: BREAST CANCER
     Dates: start: 20151020, end: 20160113
  17. MUCINEX [Concomitant]
     Active Substance: GUAIFENESIN
     Dosage: STRENGTH: 600 MG 12 HR TABLET?TAKE 1200 MG BY MOUTH TWICE DAILY AS NEEDED
     Route: 048
  18. BIOTIN [Concomitant]
     Active Substance: BIOTIN
     Route: 048
  19. ZYRTEC [Concomitant]
     Active Substance: CETIRIZINE HYDROCHLORIDE
     Route: 048
     Dates: start: 20070101
  20. ANASTROZOLE. [Concomitant]
     Active Substance: ANASTROZOLE
     Dates: start: 20160101
  21. COLECALCIFEROL [Concomitant]
     Active Substance: CHOLECALCIFEROL
     Dosage: STRENGTH: 5000 UNIT TAB?TAKE 5000 UNITES BY MOUTH ONCE DAILY
     Route: 048
  22. DECADRON [Concomitant]
     Active Substance: DEXAMETHASONE
     Dosage: STRENGTH: 4 MG?TAKE ONE TABLET EVERY 12 HOURS THE DAY BEFORE AND DAY AFTER CHEMOTHERAPY
  23. LASIX [Concomitant]
     Active Substance: FUROSEMIDE
     Dosage: STRENGTH: 20 MG?TAKE 1 TABLET BY MOUTH ONCE DAILY
     Route: 048
  24. ZOFRAN [Concomitant]
     Active Substance: ONDANSETRON HYDROCHLORIDE
     Dosage: STRENGTH: 8 MG?TAKE 1 TABLET BY MOUTH EVERY 8 HOURS AS NEEDED
     Route: 048
  25. CYANOCOBALAMIN. [Concomitant]
     Active Substance: CYANOCOBALAMIN
     Dosage: STRENGTH: 1000 MCG?TAKE 1 TABLET BY MOUTH ONCE DAILY
     Route: 048
  26. POTASSIUM [Concomitant]
     Active Substance: POTASSIUM
     Dates: start: 1995
  27. ALKA-SELTZER PLUS COLD [Concomitant]
     Active Substance: ACETAMINOPHEN\CHLORPHENIRAMINE MALEATE\PHENYLEPHRINE HYDROCHLORIDE
     Dosage: TAKE BY MOUTH TWICE DAILY AS NEEDED
     Route: 048
  28. COMPAZINE [Concomitant]
     Active Substance: PROCHLORPERAZINE MALEATE
     Dosage: STRENGTH: 10 MG?TAKE 1 TABLET BY MOUTH EVERY 6 HOURS AS NEEDED
     Route: 048
  29. PYRIDOXINE [Concomitant]
     Active Substance: PYRIDOXINE

REACTIONS (1)
  - Alopecia [Recovering/Resolving]
